FAERS Safety Report 19599820 (Version 1)
Quarter: 2021Q3

REPORT INFORMATION
  Report Type: Spontaneous
  Country: US (occurrence: US)
  Receive Date: 20210723
  Receipt Date: 20210723
  Transmission Date: 20211014
  Serious: No
  Sender: FDA-Public Use
  Company Number: None

PATIENT
  Age: 16 Month
  Sex: Female

DRUGS (2)
  1. ONFI [Concomitant]
     Active Substance: CLOBAZAM
  2. VIGABATRIN 500MG PACKET [Suspect]
     Active Substance: VIGABATRIN
     Indication: EPILEPSY
     Route: 048

REACTIONS (2)
  - Therapy change [None]
  - Infantile spasms [None]

NARRATIVE: CASE EVENT DATE: 20210722
